FAERS Safety Report 9625153 (Version 1)
Quarter: 2013Q4

REPORT INFORMATION
  Report Type: Spontaneous
  Country: US (occurrence: None)
  Receive Date: 20131015
  Receipt Date: 20131015
  Transmission Date: 20140711
  Serious: Yes (Other)
  Sender: FDA-Public Use
  Company Number: None

PATIENT
  Age: 36 Year
  Sex: Female

DRUGS (1)
  1. EMBREL [Suspect]
     Indication: RHEUMATOID ARTHRITIS
     Dosage: Q7 DAYS , SUB Q
     Dates: start: 20130813, end: 20130926

REACTIONS (2)
  - Burning sensation [None]
  - Local swelling [None]
